FAERS Safety Report 21891226 (Version 1)
Quarter: 2023Q1

REPORT INFORMATION
  Report Type: Spontaneous
  Country: US (occurrence: US)
  Receive Date: 20230120
  Receipt Date: 20230120
  Transmission Date: 20230417
  Serious: Yes (Other)
  Sender: FDA-Public Use
  Company Number: US-009507513-2301USA006308

PATIENT

DRUGS (1)
  1. BRIDION [Suspect]
     Active Substance: SUGAMMADEX
     Dosage: UNK

REACTIONS (4)
  - Bradycardia [Recovered/Resolved]
  - Overdose [Recovered/Resolved]
  - Off label use [Unknown]
  - Product administered to patient of inappropriate age [Unknown]
